FAERS Safety Report 7572212-X (Version None)
Quarter: 2011Q2

REPORT INFORMATION
  Report Type: 
  Country: None (occurrence: None)
  Receive Date: 20110624
  Receipt Date: 20110613
  Transmission Date: 20111010
  Serious: Yes (Other)
  Sender: FDA-Public Use
  Company Number: PHHY2011US44790

PATIENT
  Sex: Female
  Weight: 78.2 kg

DRUGS (4)
  1. PENICILLIN [Concomitant]
     Indication: ACTINOMYCOSIS
     Route: 048
     Dates: start: 20100901
  2. HERCEPTIN [Concomitant]
     Indication: BREAST CANCER METASTATIC
     Route: 042
  3. ZOMETA [Suspect]
     Indication: METASTASES TO BONE
     Route: 042
     Dates: start: 20010401, end: 20090909
  4. ABRAXANE [Concomitant]
     Indication: METASTASES TO BONE
     Route: 042
     Dates: start: 20101104, end: 20110525

REACTIONS (1)
  - FOOT FRACTURE [None]
